FAERS Safety Report 17840044 (Version 1)
Quarter: 2020Q2

REPORT INFORMATION
  Report Type: Spontaneous
  Country: US (occurrence: US)
  Receive Date: 20200529
  Receipt Date: 20200529
  Transmission Date: 20200714
  Serious: No
  Sender: FDA-Public Use
  Company Number: US-ACCORD-149641

PATIENT
  Age: 73 Year
  Sex: Female
  Weight: 112.49 kg

DRUGS (9)
  1. FLONASE [Concomitant]
     Active Substance: FLUTICASONE PROPIONATE
     Dosage: 50MCG/2 SPRAYS EACH NOSTRIL DAILY
  2. CODEINE PHOSPHATE/PARACETAMOL [Concomitant]
     Active Substance: ACETAMINOPHEN\CODEINE PHOSPHATE
  3. SIMVASTATIN. [Concomitant]
     Active Substance: SIMVASTATIN
  4. VITAMINS NOS [Concomitant]
     Active Substance: VITAMINS
     Dosage: EXTRA CALCIUM 500 MG, B, VIT D
  5. CLONAZEPAM ACCORD [Suspect]
     Active Substance: CLONAZEPAM
     Indication: ANXIETY
     Dosage: ONCE A DAY
     Route: 048
     Dates: start: 20190522, end: 20190717
  6. BACLOFEN. [Concomitant]
     Active Substance: BACLOFEN
     Dosage: TWICE A DAY
     Route: 048
  7. SINGULAIR [Concomitant]
     Active Substance: MONTELUKAST SODIUM
     Dosage: ONCE DAY BEDTIME
  8. CLONAZEPAM ACCORD [Suspect]
     Active Substance: CLONAZEPAM
     Indication: ANXIETY
     Dosage: ONCE A DAY
     Route: 048
     Dates: start: 20190717, end: 20190724
  9. ATENOLOL/HYDROCHLOROTHIAZIDE [Concomitant]
     Active Substance: ATENOLOL\HYDROCHLOROTHIAZIDE
     Dosage: 100-25MG/ONCE A DAY

REACTIONS (8)
  - Mania [Recovered/Resolved]
  - Irritability [Recovered/Resolved]
  - Anger [Recovered/Resolved]
  - Off label use [Unknown]
  - Agitation [Recovered/Resolved]
  - Anxiety [Recovered/Resolved]
  - Insomnia [Recovered/Resolved]
  - Sleep disorder [Recovered/Resolved]

NARRATIVE: CASE EVENT DATE: 20190723
